FAERS Safety Report 15204609 (Version 1)
Quarter: 2018Q3

REPORT INFORMATION
  Report Type: Spontaneous
  Country: US (occurrence: US)
  Receive Date: 20180726
  Receipt Date: 20180726
  Transmission Date: 20181010
  Serious: No
  Sender: FDA-Public Use
  Company Number: US-IMPAX LABORATORIES, INC-2017-IPXL-02448

PATIENT
  Age: 14 Year
  Sex: Female
  Weight: 59 kg

DRUGS (2)
  1. ADRENACLICK [Suspect]
     Active Substance: EPINEPHRINE
     Indication: ALLERGY TO ARTHROPOD STING
     Dosage: AUTO?INJECTORS 0.3 MG, UNK
     Route: 050
     Dates: start: 20170805, end: 20170805
  2. ADRENACLICK [Suspect]
     Active Substance: EPINEPHRINE
     Dosage: TEN TO FIFTEEN MINUTES LATER, 2ND AUTO?INJECTORS 0.3 MG, UNK
     Route: 050
     Dates: start: 20170805, end: 20170805

REACTIONS (1)
  - Therapeutic response decreased [Unknown]

NARRATIVE: CASE EVENT DATE: 20170805
